FAERS Safety Report 8363398-8 (Version None)
Quarter: 2012Q2

REPORT INFORMATION
  Report Type: 
  Country: None (occurrence: None)
  Receive Date: 20120516
  Receipt Date: 20120109
  Transmission Date: 20120825
  Serious: Yes (Other)
  Sender: FDA-Public Use
  Company Number: US-ALEXION-A201101395

PATIENT
  Sex: Female

DRUGS (4)
  1. CLARITIN [Concomitant]
     Dosage: UNK
     Route: 048
  2. SOLIRIS [Suspect]
     Indication: PAROXYSMAL NOCTURNAL HAEMOGLOBINURIA
     Dosage: 900 MG, Q2W
     Route: 042
     Dates: start: 20101101
  3. FOLIC ACID [Concomitant]
     Dosage: UNK
     Route: 048
  4. MULTI-VITAMIN [Concomitant]
     Dosage: UNK
     Route: 048

REACTIONS (8)
  - DISEASE PROGRESSION [None]
  - BLOOD PRODUCT TRANSFUSION [None]
  - PLATELET COUNT DECREASED [None]
  - RED BLOOD CELL COUNT DECREASED [None]
  - CONDITION AGGRAVATED [None]
  - SERUM FERRITIN INCREASED [None]
  - HAEMOGLOBIN DECREASED [None]
  - HAEMATOCRIT DECREASED [None]
